FAERS Safety Report 26039855 (Version 2)
Quarter: 2025Q4

REPORT INFORMATION
  Report Type: Spontaneous
  Country: EU (occurrence: EU)
  Receive Date: 20251113
  Receipt Date: 20251206
  Transmission Date: 20260118
  Serious: Yes (Other)
  Sender: AMGEN
  Company Number: EU-AMGEN-FRASP2025218429

PATIENT

DRUGS (1)
  1. LUMAKRAS [Suspect]
     Active Substance: SOTORASIB
     Indication: Non-small cell lung cancer
     Dosage: 960 MILLIGRAM, QD (120 MG TABLETS)
     Route: 065
     Dates: start: 20240918

REACTIONS (3)
  - Non-small cell lung cancer [Unknown]
  - Diarrhoea [Unknown]
  - Rash [Unknown]

NARRATIVE: CASE EVENT DATE: 20251103
